FAERS Safety Report 16549261 (Version 2)
Quarter: 2019Q3

REPORT INFORMATION
  Report Type: Spontaneous
  Country: US (occurrence: US)
  Receive Date: 20190709
  Receipt Date: 20190709
  Transmission Date: 20191004
  Serious: Yes (Hospitalization, Other)
  Sender: FDA-Public Use
  Company Number: US-GILEAD-2019-0416873

PATIENT
  Sex: Female

DRUGS (14)
  1. PEGINTRON [Suspect]
     Active Substance: PEGINTERFERON ALFA-2B
     Indication: HEPATITIS C VIRUS TEST POSITIVE
     Dosage: UNK, Q7DAYS
     Route: 065
     Dates: start: 19930101, end: 20110601
  2. PEGINTRON [Suspect]
     Active Substance: PEGINTERFERON ALFA-2B
     Dosage: 0.5 ML, UNK
     Route: 058
     Dates: start: 20140301
  3. OMEPRAZOLE. [Concomitant]
     Active Substance: OMEPRAZOLE
     Dosage: UNK, QD
  4. REBETOL [Suspect]
     Active Substance: RIBAVIRIN
     Indication: HEPATITIS C VIRUS TEST POSITIVE
     Dosage: UNK, BID (TWICE A DAY)
     Route: 048
     Dates: start: 19930101, end: 20110601
  5. ACETYLSALICYLIC ACID [Concomitant]
     Active Substance: ASPIRIN
     Dosage: UNK, QD
  6. PROVENTIL [Concomitant]
     Active Substance: ALBUTEROL
     Dosage: 1 TO 2 PUFFS, PRN STRENGHT 6.7 GM/200 METERS
  7. REBETOL [Suspect]
     Active Substance: RIBAVIRIN
     Dosage: 600 MG (1 PILL), BID
     Route: 048
     Dates: start: 20140301
  8. INCIVEK [Suspect]
     Active Substance: TELAPREVIR
     Dosage: UNK, QD
     Route: 048
  9. PEGINTRON [Suspect]
     Active Substance: PEGINTERFERON ALFA-2B
     Dosage: UNK, ONCE A WEEK
     Route: 058
     Dates: start: 20120622, end: 20121222
  10. LEVOTHYROXINE SODIUM. [Concomitant]
     Active Substance: LEVOTHYROXINE SODIUM
     Dosage: UNK UNK, QD
     Route: 048
  11. METFORMIN [Concomitant]
     Active Substance: METFORMIN HYDROCHLORIDE
     Dosage: UNK UNK, QD
  12. SOVALDI [Suspect]
     Active Substance: SOFOSBUVIR
     Indication: HEPATITIS C VIRUS TEST POSITIVE
     Dosage: UNK, QD
     Route: 065
  13. REBETOL [Suspect]
     Active Substance: RIBAVIRIN
     Dosage: UNK, DAILY
     Route: 048
     Dates: start: 20120622, end: 20121222
  14. INCIVEK [Suspect]
     Active Substance: TELAPREVIR
     Indication: HEPATITIS C VIRUS TEST POSITIVE
     Dosage: UNK, TID (THREE TIMES A DAY)
     Route: 048
     Dates: start: 20110101, end: 20110301

REACTIONS (16)
  - Cervix carcinoma [Unknown]
  - Liver disorder [Unknown]
  - Feeling abnormal [Unknown]
  - Weight decreased [Unknown]
  - Drug ineffective [Unknown]
  - Encephalopathy [Unknown]
  - Aphasia [Unknown]
  - Gait disturbance [Unknown]
  - Feeling abnormal [Unknown]
  - Weight increased [Unknown]
  - Confusional state [Unknown]
  - Depression [Unknown]
  - Radical hysterectomy [Unknown]
  - Hepatitis C [Unknown]
  - Psychomotor hyperactivity [Unknown]
  - Anaemia [Unknown]

NARRATIVE: CASE EVENT DATE: 2012
